FAERS Safety Report 5197093-3 (Version None)
Quarter: 2007Q1

REPORT INFORMATION
  Report Type: 
  Country: None (occurrence: None)
  Receive Date: 20070103
  Receipt Date: 20061220
  Transmission Date: 20070707
  Serious: Yes (Hospitalization)
  Sender: FDA-Public Use
  Company Number: FR-ELI_LILLY_AND_COMPANY-FR200612003527

PATIENT
  Age: 67 Year
  Sex: Male
  Weight: 99 kg

DRUGS (1)
  1. ALIMTA [Suspect]
     Dosage: UNK, UNKNOWN
     Route: 042

REACTIONS (2)
  - RENAL FAILURE ACUTE [None]
  - THROMBOCYTOPENIA [None]
